FAERS Safety Report 11052016 (Version 1)
Quarter: 2015Q2

REPORT INFORMATION
  Report Type: Spontaneous
  Country: US (occurrence: None)
  Receive Date: 20150420
  Receipt Date: 20150420
  Transmission Date: 20150821
  Serious: Yes (Hospitalization)
  Sender: FDA-Public Use
  Company Number: None

PATIENT
  Age: 54 Year
  Sex: Male
  Weight: 149.4 kg

DRUGS (1)
  1. METOLAZONE. [Suspect]
     Active Substance: METOLAZONE
     Indication: CARDIAC FAILURE CONGESTIVE
     Route: 048
     Dates: start: 20071217, end: 20141213

REACTIONS (3)
  - Ventricular tachycardia [None]
  - Hypokalaemia [None]
  - Ventricular fibrillation [None]

NARRATIVE: CASE EVENT DATE: 20141210
